FAERS Safety Report 24962237 (Version 4)
Quarter: 2025Q2

REPORT INFORMATION
  Report Type: Spontaneous
  Country: US (occurrence: US)
  Receive Date: 20250212
  Receipt Date: 20250502
  Transmission Date: 20250716
  Serious: Yes (Disabling, Other)
  Sender: PFIZER
  Company Number: US-PFIZER INC-202500030010

PATIENT
  Age: 37 Year
  Sex: Female
  Weight: 84.8 kg

DRUGS (11)
  1. TIVDAK [Suspect]
     Active Substance: TISOTUMAB VEDOTIN-TFTV
     Indication: Squamous cell carcinoma of the cervix
     Route: 042
     Dates: start: 20240304, end: 20250204
  2. TIVDAK [Suspect]
     Active Substance: TISOTUMAB VEDOTIN-TFTV
     Route: 042
     Dates: start: 20250204, end: 2025
  3. LEVOTHYROXINE [Concomitant]
     Active Substance: LEVOTHYROXINE
     Indication: Hypothyroidism
     Dosage: 200 UG, DAILY (IN AM)
  4. LORAZEPAM [Concomitant]
     Active Substance: LORAZEPAM
     Indication: Anxiety disorder due to a general medical condition
     Route: 042
  5. LORAZEPAM [Concomitant]
     Active Substance: LORAZEPAM
     Indication: Cervix carcinoma
  6. MORPHINE [Concomitant]
     Active Substance: MORPHINE
     Indication: Cancer pain
     Dosage: 200 MG, 3X/DAY (12-HR TAB, CR)
  7. ONDANSETRON [Concomitant]
     Active Substance: ONDANSETRON
     Indication: Squamous cell carcinoma of skin
  8. ONDANSETRON [Concomitant]
     Active Substance: ONDANSETRON
     Indication: Nausea
  9. ONDANSETRON [Concomitant]
     Active Substance: ONDANSETRON
     Indication: Vomiting
  10. OXYCODONE [Concomitant]
     Active Substance: OXYCODONE
     Indication: Cancer pain
  11. VIMPAT [Concomitant]
     Active Substance: LACOSAMIDE
     Indication: Seizure
     Dosage: 100 MG, 2X/DAY

REACTIONS (7)
  - Asthenia [Recovering/Resolving]
  - Pyelonephritis [Recovering/Resolving]
  - Peripheral motor neuropathy [Recovering/Resolving]
  - Loss of personal independence in daily activities [Recovering/Resolving]
  - Fall [Recovering/Resolving]
  - Joint instability [Recovering/Resolving]
  - Muscular weakness [Unknown]

NARRATIVE: CASE EVENT DATE: 20240501
